FAERS Safety Report 7404973-4 (Version None)
Quarter: 2011Q2

REPORT INFORMATION
  Report Type: 
  Country: None (occurrence: None)
  Receive Date: 20110411
  Receipt Date: 20100323
  Transmission Date: 20111010
  Serious: Yes (Other)
  Sender: FDA-Public Use
  Company Number: US-KINGPHARMUSA00001-K201000356

PATIENT
  Sex: Female

DRUGS (1)
  1. THROMBIN-JMI [Suspect]
     Indication: AORTIC ANEURYSM REPAIR
     Dosage: UNK

REACTIONS (1)
  - HAEMORRHAGE [None]
